FAERS Safety Report 8478283-0 (Version None)
Quarter: 2012Q2

REPORT INFORMATION
  Report Type: 
  Country: None (occurrence: None)
  Receive Date: 20120629
  Receipt Date: 20120627
  Transmission Date: 20120825
  Serious: Yes (Death, Hospitalization)
  Sender: FDA-Public Use
  Company Number: US-JNJFOC-20120614118

PATIENT
  Sex: Female
  Weight: 86.18 kg

DRUGS (3)
  1. GLUCOPHAGE [Concomitant]
     Route: 048
     Dates: end: 20120619
  2. OTHER THERAPEUTIC MEDICATIONS [Concomitant]
  3. XARELTO [Suspect]
     Indication: ATRIAL FIBRILLATION
     Route: 048
     Dates: start: 20120517, end: 20120619

REACTIONS (1)
  - CEREBRAL HAEMORRHAGE [None]
